FAERS Safety Report 14210509 (Version 2)
Quarter: 2017Q4

REPORT INFORMATION
  Report Type: Spontaneous
  Country: US (occurrence: US)
  Receive Date: 20171121
  Receipt Date: 20171122
  Transmission Date: 20180321
  Serious: No
  Sender: FDA-Public Use
  Company Number: US-GLAXOSMITHKLINE-US2017176426

PATIENT
  Age: 60 Year
  Sex: Male

DRUGS (5)
  1. GARLIC PILLS [Concomitant]
  2. LISINOPRIL. [Concomitant]
     Active Substance: LISINOPRIL
  3. PROAIR HFA [Concomitant]
     Active Substance: ALBUTEROL SULFATE
  4. ADVAIR DISKUS [Suspect]
     Active Substance: FLUTICASONE PROPIONATE\SALMETEROL XINAFOATE
     Indication: ASTHMA
     Dosage: 1 PUFF(S), BID
     Route: 055
  5. PROVENTIL [Concomitant]
     Active Substance: ALBUTEROL

REACTIONS (6)
  - Drug dose omission [Unknown]
  - Product quality issue [Unknown]
  - Dizziness [Recovering/Resolving]
  - Blood pressure increased [Recovering/Resolving]
  - Feeling abnormal [Unknown]
  - Wheezing [Recovered/Resolved]

NARRATIVE: CASE EVENT DATE: 201711
